FAERS Safety Report 12445090 (Version 9)
Quarter: 2018Q3

REPORT INFORMATION
  Report Type: Spontaneous
  Country: US (occurrence: US)
  Receive Date: 20160607
  Receipt Date: 20180723
  Transmission Date: 20181010
  Serious: Yes (Hospitalization, Disabling, Other)
  Sender: FDA-Public Use
  Company Number: US-009507513-1606USA003010

PATIENT
  Sex: Female
  Weight: 119.73 kg

DRUGS (3)
  1. NUVARING [Suspect]
     Active Substance: ETHINYL ESTRADIOL\ETONOGESTREL
     Indication: CONTRACEPTION
     Dosage: 0.12?0.015 MG, UNK
     Route: 067
     Dates: start: 20140425, end: 201406
  2. NUVARING [Suspect]
     Active Substance: ETHINYL ESTRADIOL\ETONOGESTREL
     Indication: CONTRACEPTION
     Dosage: UNK
     Route: 067
  3. VENTOLIN HFA [Concomitant]
     Active Substance: ALBUTEROL SULFATE
     Indication: ASTHMA
     Dosage: 2 PUFFS Q4H AS NEEDED
     Route: 065
     Dates: start: 20131122

REACTIONS (33)
  - Asthma [Unknown]
  - Hypersensitivity [Unknown]
  - Increased tendency to bruise [Unknown]
  - Cardiac arrest [Recovered/Resolved]
  - Blindness cortical [Not Recovered/Not Resolved]
  - Hallucination, auditory [Unknown]
  - Pulmonary embolism [Recovered/Resolved]
  - Pulmonary embolism [Unknown]
  - Cardiogenic shock [Unknown]
  - Sepsis [Recovered/Resolved]
  - Shock [Unknown]
  - Cerebrovascular accident [Unknown]
  - Myocardial infarction [Unknown]
  - Bacterial vulvovaginitis [Unknown]
  - Menorrhagia [Unknown]
  - Cardiac failure [Unknown]
  - Depression [Unknown]
  - Anxiety [Unknown]
  - Migraine [Unknown]
  - Insomnia [Unknown]
  - Acute respiratory failure [Recovered/Resolved]
  - Bronchitis [Recovered/Resolved]
  - Uterine dilation and curettage [Unknown]
  - Nausea [Unknown]
  - Muscle spasms [Unknown]
  - Coagulopathy [Unknown]
  - Urticaria [Unknown]
  - Deep vein thrombosis [Unknown]
  - Urinary tract infection [Unknown]
  - Asthma [Recovered/Resolved]
  - Deep vein thrombosis [Unknown]
  - Unintended pregnancy [Unknown]
  - Bronchitis [Unknown]

NARRATIVE: CASE EVENT DATE: 20140425
